FAERS Safety Report 5124634-4 (Version None)
Quarter: 2006Q4

REPORT INFORMATION
  Report Type: 
  Country: None (occurrence: None)
  Receive Date: 20061006
  Receipt Date: 20061006
  Transmission Date: 20070319
  Serious: Yes (Life-Threatening, Hospitalization)
  Sender: FDA-Public Use
  Company Number: None

PATIENT
  Sex: Female
  Weight: 93 kg

DRUGS (22)
  1. DIGOXIN [Suspect]
     Indication: CARDIAC FAILURE CONGESTIVE
     Dosage: 0.25 MG DAILY PO
     Route: 048
  2. DIGOXIN [Suspect]
     Indication: SUPRAVENTRICULAR TACHYCARDIA
     Dosage: 0.25 MG DAILY PO
     Route: 048
  3. POTASSIUM CHLORIDE 20MEQ [Suspect]
     Dosage: 20 MEQ DAILY PO
     Route: 048
  4. ASPIRIN [Concomitant]
  5. METFORMIN HCL [Concomitant]
  6. GLYBURIDE [Concomitant]
  7. AVALIDE [Concomitant]
  8. LOTREL [Concomitant]
  9. CLONIDINE [Concomitant]
  10. DIGOXIN [Concomitant]
  11. LASIX [Concomitant]
  12. METOLAZONE [Concomitant]
  13. POTASSIUM CHLORIDE [Concomitant]
  14. PREMARIN [Concomitant]
  15. CELEBREX [Concomitant]
  16. XENICAL [Concomitant]
  17. ZOCOR [Concomitant]
  18. TRICOR [Concomitant]
  19. PRILOSEC [Concomitant]
  20. ELAVIL [Concomitant]
  21. NEURONTIN [Concomitant]
  22. MECLIZINE [Concomitant]

REACTIONS (6)
  - BLOOD POTASSIUM INCREASED [None]
  - CHEST DISCOMFORT [None]
  - CHEST PAIN [None]
  - DYSPNOEA [None]
  - DYSPNOEA EXERTIONAL [None]
  - NODAL ARRHYTHMIA [None]
